FAERS Safety Report 14806420 (Version 2)
Quarter: 2018Q2

REPORT INFORMATION
  Report Type: Spontaneous
  Country: FR (occurrence: FR)
  Receive Date: 20180425
  Receipt Date: 20180510
  Transmission Date: 20180711
  Serious: Yes (Death)
  Sender: FDA-Public Use
  Company Number: FR-FERRINGPH-2018FE02004

PATIENT

DRUGS (1)
  1. PROPESS [Suspect]
     Active Substance: DINOPROSTONE
     Indication: LABOUR INDUCTION
     Dosage: 1 DF ONCE/SINGLE
     Route: 064
     Dates: start: 20180228, end: 20180228

REACTIONS (2)
  - Foetal death [Fatal]
  - Bradycardia foetal [Fatal]

NARRATIVE: CASE EVENT DATE: 20180228
